FAERS Safety Report 16807864 (Version 2)
Quarter: 2019Q3

REPORT INFORMATION
  Report Type: Spontaneous
  Country: BR (occurrence: BR)
  Receive Date: 20190915
  Receipt Date: 20190915
  Transmission Date: 20191005
  Serious: Yes (Other)
  Sender: FDA-Public Use
  Company Number: PHHY2019BR213458

PATIENT
  Age: 48 Year
  Sex: Female

DRUGS (8)
  1. CYCLOPHOSPHAMIDE. [Suspect]
     Active Substance: CYCLOPHOSPHAMIDE
     Indication: CHRONIC MYELOID LEUKAEMIA
     Route: 065
  2. ADRIAMYCIN [Suspect]
     Active Substance: DOXORUBICIN HYDROCHLORIDE
     Indication: CHRONIC MYELOID LEUKAEMIA
     Dosage: UNK
     Route: 065
  3. ATENOLOL. [Concomitant]
     Active Substance: ATENOLOL
     Indication: HYPERTENSION
     Route: 065
  4. IMATINIB. [Suspect]
     Active Substance: IMATINIB MESYLATE
     Indication: CHRONIC MYELOID LEUKAEMIA
     Dosage: 400 MG, QD
     Route: 065
     Dates: start: 201707
  5. OXALIPLATIN. [Suspect]
     Active Substance: OXALIPLATIN
     Indication: CHRONIC MYELOID LEUKAEMIA
     Dosage: UNK
     Route: 065
  6. FLUOROURACIL. [Suspect]
     Active Substance: FLUOROURACIL
     Indication: CHRONIC MYELOID LEUKAEMIA
     Dosage: UNK
     Route: 065
  7. LOSARTAN. [Concomitant]
     Active Substance: LOSARTAN
     Indication: HYPERTENSION
     Dosage: UNK
     Route: 065
  8. LEUCOVORIN. [Suspect]
     Active Substance: LEUCOVORIN
     Indication: CHRONIC MYELOID LEUKAEMIA
     Dosage: UNK
     Route: 065

REACTIONS (12)
  - Thrombocytopenia [Unknown]
  - Splenomegaly [Unknown]
  - Anaemia [Unknown]
  - Diarrhoea [Unknown]
  - Second primary malignancy [Unknown]
  - Myalgia [Unknown]
  - Adenocarcinoma of colon [Unknown]
  - Muscle spasms [Unknown]
  - Treatment failure [Unknown]
  - Nausea [Unknown]
  - Intestinal haemorrhage [Unknown]
  - Swelling face [Unknown]
